FAERS Safety Report 10582877 (Version 2)
Quarter: 2014Q4

REPORT INFORMATION
  Report Type: Report from Study
  Country: BR (occurrence: BR)
  Receive Date: 20141114
  Receipt Date: 20141114
  Transmission Date: 20150529
  Serious: Yes (Death, Other)
  Sender: FDA-Public Use
  Company Number: BR-AMGEN-BRACT2011063757

PATIENT
  Age: 73 Year
  Sex: Male
  Weight: 49.98 kg

DRUGS (12)
  1. ETANERCEPT [Suspect]
     Active Substance: ETANERCEPT
     Dosage: UNK
     Route: 065
  2. ETANERCEPT [Suspect]
     Active Substance: ETANERCEPT
     Indication: RHEUMATOID ARTHRITIS
     Dosage: 50 MG, WEEKLY
     Route: 058
     Dates: start: 201008
  3. RANITIDINE                         /00550802/ [Concomitant]
     Dosage: 200 MG, UNK
  4. AMITRIPTYLINE                      /00002202/ [Concomitant]
     Dosage: 4.5 MG, UNK
  5. DECADRON [Concomitant]
     Active Substance: DEXAMETHASONE
     Dosage: 2.5 MG, ONCE A MONTH
  6. ETANERCEPT [Suspect]
     Active Substance: ETANERCEPT
     Dosage: 50 MG, ONCE WEEKLY
     Route: 058
     Dates: start: 201110
  7. PREDNISONE. [Concomitant]
     Active Substance: PREDNISONE
     Dosage: 5 MG, UNK
  8. CYCLOBENZAPRINE                    /00428402/ [Concomitant]
     Dosage: 2.5 MG, QD
  9. CENTRUM                            /00554501/ [Concomitant]
     Active Substance: VITAMINS
  10. DIPIRONE [Concomitant]
     Active Substance: METAMIZOLE SODIUM
     Indication: PAIN
     Dosage: 50 DROPS
  11. DIPIRONE [Concomitant]
     Active Substance: METAMIZOLE SODIUM
     Dosage: UNK, AS NEEDED
  12. PROFALEXINA [Concomitant]
     Indication: INFLAMMATION
     Dosage: 1 TABLET, 3X/DAY

REACTIONS (13)
  - Feeling hot [Unknown]
  - Spinal pain [Unknown]
  - Pain in extremity [Unknown]
  - Feeling cold [Unknown]
  - Pain [Unknown]
  - Injection site pain [Unknown]
  - Product quality issue [Unknown]
  - Pneumonia [Fatal]
  - Sensory disturbance [Unknown]
  - Pleural effusion [Fatal]
  - Product use issue [Unknown]
  - Gait disturbance [Unknown]
  - Limb injury [Unknown]
